FAERS Safety Report 5262808-2 (Version None)
Quarter: 2007Q1

REPORT INFORMATION
  Report Type: 
  Country: None (occurrence: None)
  Receive Date: 20070312
  Receipt Date: 20070306
  Transmission Date: 20070707
  Serious: Yes (Other)
  Sender: FDA-Public Use
  Company Number: BE-GLAXOSMITHKLINE-B0461167A

PATIENT
  Age: 71 Year
  Sex: Male

DRUGS (1)
  1. AMOXICILLIN [Suspect]
     Indication: GINGIVITIS
     Dosage: 500MG THREE TIMES PER DAY
     Route: 048
     Dates: start: 20070201, end: 20070205

REACTIONS (5)
  - AGRANULOCYTOSIS [None]
  - FURUNCLE [None]
  - LYMPHANGITIS [None]
  - PYREXIA [None]
  - SKIN ULCER [None]
